FAERS Safety Report 18163084 (Version 2)
Quarter: 2020Q3

REPORT INFORMATION
  Report Type: Spontaneous
  Country: US (occurrence: US)
  Receive Date: 20200818
  Receipt Date: 20200831
  Transmission Date: 20201103
  Serious: No
  Sender: FDA-Public Use
  Company Number: US-JNJFOC-20200816551

PATIENT
  Sex: Female
  Weight: 89.89 kg

DRUGS (1)
  1. MENS ROGAINE EXTRA STRENGTH [Suspect]
     Active Substance: MINOXIDIL
     Indication: ALOPECIA
     Dosage: 1 FULL DROPPER?LAST USED PRODUCT ON 09?JUL?2020
     Route: 061

REACTIONS (3)
  - Application site pruritus [Recovered/Resolved]
  - Intentional product misuse [Unknown]
  - Product use issue [Unknown]
